FAERS Safety Report 5893273-X (Version None)
Quarter: 2008Q3

REPORT INFORMATION
  Report Type: 
  Country: None (occurrence: None)
  Receive Date: 20080923
  Receipt Date: 20080916
  Transmission Date: 20090109
  Serious: Yes (Other)
  Sender: FDA-Public Use
  Company Number: A0742488A

PATIENT
  Age: 37 Year
  Sex: Male

DRUGS (2)
  1. ZYBAN [Suspect]
     Dosage: 150MG TWICE PER DAY
     Route: 048
     Dates: start: 20080725
  2. IBUPROFEN [Suspect]
     Dosage: 1200MG UNKNOWN
     Route: 048

REACTIONS (1)
  - DIARRHOEA HAEMORRHAGIC [None]
